FAERS Safety Report 25956213 (Version 4)
Quarter: 2025Q4

REPORT INFORMATION
  Report Type: Spontaneous
  Country: US (occurrence: US)
  Receive Date: 20251024
  Receipt Date: 20251211
  Transmission Date: 20260118
  Serious: No
  Sender: SANDOZ
  Company Number: US-SANDOZ-SDZ2025US078251

PATIENT
  Sex: Female

DRUGS (5)
  1. COMBIPATCH [Suspect]
     Active Substance: ESTRADIOL\NORETHINDRONE ACETATE
     Dosage: 0.05/0.25 MG, TWICE A WEEK 20-OCT-2025 00:00
     Route: 062
  2. COMBIPATCH [Suspect]
     Active Substance: ESTRADIOL\NORETHINDRONE ACETATE
     Indication: Product used for unknown indication
     Dosage: 0.05/0.25 MG, CHANGES  PATCHES ON MONDAYS AND FRIDAYS
     Route: 062
     Dates: start: 20250808
  3. PROGESTERONE [Suspect]
     Active Substance: PROGESTERONE
     Indication: Vaginal haemorrhage
     Dosage: 200 MG DAILY WHICH WAS  LATER TAKEN BY PATIENT ONCE A WEEK
     Route: 048
  4. PROGESTERONE [Suspect]
     Active Substance: PROGESTERONE
     Dosage: 200 MG DAILY WHICH WAS  LATER TAKEN BY PATIENT ONCE A WEEK
     Route: 048
  5. TESTOSTERONE [Suspect]
     Active Substance: TESTOSTERONE
     Indication: Intermenstrual bleeding
     Dosage: UNK 11-OCT-2025 00:00
     Route: 061

REACTIONS (2)
  - Vaginal haemorrhage [Recovered/Resolved]
  - Pruritus [Not Recovered/Not Resolved]

NARRATIVE: CASE EVENT DATE: 20250101
